FAERS Safety Report 18838068 (Version 1)
Quarter: 2021Q1

REPORT INFORMATION
  Report Type: Spontaneous
  Country: US (occurrence: US)
  Receive Date: 20210203
  Receipt Date: 20210203
  Transmission Date: 20210419
  Serious: No
  Sender: FDA-Public Use
  Company Number: US-ALLERGAN-2021744US

PATIENT
  Sex: Female

DRUGS (1)
  1. BOTOX [Suspect]
     Active Substance: ONABOTULINUMTOXINA
     Indication: MIGRAINE
     Dosage: 197.5 UNITS, SINGLE
     Route: 065
     Dates: start: 20200228, end: 20200228

REACTIONS (3)
  - Off label use [Unknown]
  - Drug ineffective [Unknown]
  - Injection site pain [Unknown]
